FAERS Safety Report 8224080-0 (Version None)
Quarter: 2012Q1

REPORT INFORMATION
  Report Type: 
  Country: None (occurrence: None)
  Receive Date: 20120321
  Receipt Date: 20120319
  Transmission Date: 20120608
  Serious: Yes (Life-Threatening, Hospitalization, Other)
  Sender: FDA-Public Use
  Company Number: PHHY2012DE008317

PATIENT
  Sex: Male
  Weight: 83 kg

DRUGS (9)
  1. THIENOPYRIDINES [Concomitant]
  2. PLATELET AGGREGATION INHIBITORS [Concomitant]
  3. DIURETICS [Concomitant]
  4. RASILEZ [Suspect]
     Indication: HYPERTENSION
     Route: 048
     Dates: start: 20081216, end: 20090716
  5. BETA BLOCKING AGENTS [Concomitant]
     Dates: start: 20110823
  6. METFORMIN HYDROCHLORIDE [Suspect]
     Indication: DIABETES MELLITUS
     Dosage: 1 DF, QD
     Route: 048
     Dates: start: 20110517, end: 20110901
  7. BETA BLOCKING AGENTS [Concomitant]
     Dates: end: 20091111
  8. GLYBURIDE [Concomitant]
     Indication: DIABETES MELLITUS
     Dosage: 3.5 MG/DAY
     Route: 048
     Dates: start: 20041101, end: 20110901
  9. EXFORGE HCT [Suspect]
     Indication: HYPERTENSION
     Dosage: UNK
     Route: 048
     Dates: start: 20091111, end: 20110808

REACTIONS (3)
  - ANGINA PECTORIS [None]
  - DYSPNOEA [None]
  - ACUTE CORONARY SYNDROME [None]
